FAERS Safety Report 7956459 (Version 15)
Quarter: 2013Q2

REPORT INFORMATION
  Report Type: Spontaneous
  Country: US (occurrence: US)
  Receive Date: 20110524
  Receipt Date: 20130617
  Transmission Date: 20140414
  Serious: Yes (Hospitalization)
  Sender: FDA-Public Use
  Company Number: US-BIOGENIDEC-2011BI018343

PATIENT
  Age: 53 Year
  Sex: Female
  Weight: 92 kg

DRUGS (22)
  1. TYSABRI [Suspect]
     Indication: MULTIPLE SCLEROSIS
     Route: 042
     Dates: start: 20070308, end: 20110414
  2. ZANAFLEX [Concomitant]
  3. ZANAFLEX [Concomitant]
  4. OXYBUTYNIN [Concomitant]
  5. ZOLOFT [Concomitant]
  6. BACLOFEN [Concomitant]
  7. BACLOFEN [Concomitant]
  8. ZOVIRAX [Concomitant]
  9. VITAMIN [Concomitant]
  10. SLIDING SCALE INSULIN [Concomitant]
  11. XANAX [Concomitant]
     Dates: start: 201107
  12. LOVENOX [Concomitant]
     Indication: THROMBOSIS PROPHYLAXIS
     Dates: start: 201107
  13. LEVOTHYROXINE [Concomitant]
  14. NITROFURANTOIN [Concomitant]
  15. PANTOPRAZOLE [Concomitant]
  16. ASPIRIN [Concomitant]
  17. LIPITOR [Concomitant]
  18. CEFTIN [Concomitant]
  19. METFORMIN [Concomitant]
  20. NEURONTIN [Concomitant]
  21. TOBRAMYCIN [Concomitant]
  22. TOVIAZ [Concomitant]

REACTIONS (3)
  - Progressive multifocal leukoencephalopathy [Recovered/Resolved]
  - Multiple sclerosis relapse [Unknown]
  - Immune reconstitution inflammatory syndrome [Recovered/Resolved]
